FAERS Safety Report 19918646 (Version 1)
Quarter: 2021Q4

REPORT INFORMATION
  Report Type: Spontaneous
  Country: CN (occurrence: CN)
  Receive Date: 20211004
  Receipt Date: 20211004
  Transmission Date: 20220303
  Serious: Yes (Hospitalization, Other)
  Sender: FDA-Public Use
  Company Number: CN-NOVARTISPH-NVSC2021CN221856

PATIENT
  Age: 53 Year
  Sex: Male

DRUGS (8)
  1. ZOMETA [Suspect]
     Active Substance: ZOLEDRONIC ACID
     Indication: Lung neoplasm malignant
     Dosage: IN JUL
     Route: 065
  2. ZOMETA [Suspect]
     Active Substance: ZOLEDRONIC ACID
     Indication: Metastases to liver
     Dosage: ON 14 AUG
     Route: 065
  3. DURVALUMAB [Concomitant]
     Active Substance: DURVALUMAB
     Indication: Vomiting
     Route: 065
  4. DURVALUMAB [Concomitant]
     Active Substance: DURVALUMAB
     Indication: Abdominal pain upper
  5. DURVALUMAB [Concomitant]
     Active Substance: DURVALUMAB
     Indication: Bone disorder
  6. DOXORUBICIN HYDROCHLORIDE [Concomitant]
     Active Substance: DOXORUBICIN HYDROCHLORIDE
     Indication: Vomiting
     Dosage: UNK
     Route: 065
  7. DOXORUBICIN HYDROCHLORIDE [Concomitant]
     Active Substance: DOXORUBICIN HYDROCHLORIDE
     Indication: Abdominal pain upper
  8. DOXORUBICIN HYDROCHLORIDE [Concomitant]
     Active Substance: DOXORUBICIN HYDROCHLORIDE
     Indication: Bone disorder

REACTIONS (9)
  - Pain [Unknown]
  - Hyperpyrexia [Unknown]
  - Biliary dilatation [Unknown]
  - Bursitis [Unknown]
  - Middle lobe syndrome [Unknown]
  - Pancreatic mass [Unknown]
  - Adrenal mass [Unknown]
  - Hypermetabolism [Unknown]
  - Bone marrow disorder [Unknown]
